FAERS Safety Report 9663714 (Version 2)
Quarter: 2021Q2

REPORT INFORMATION
  Report Type: Spontaneous
  Country: IT (occurrence: IT)
  Receive Date: 20131101
  Receipt Date: 20210510
  Transmission Date: 20210717
  Serious: Yes (Other)
  Sender: FDA-Public Use
  Company Number: PHHY2013IT120411

PATIENT
  Age: 25 Year
  Sex: Male

DRUGS (4)
  1. CARBAMAZEPINE. [Suspect]
     Active Substance: CARBAMAZEPINE
     Indication: EPILEPSY
     Dosage: 200 MG, TID
     Route: 065
  2. FLUDROCORTISONE ACETATE. [Interacting]
     Active Substance: FLUDROCORTISONE ACETATE
     Indication: 21-HYDROXYLASE DEFICIENCY
     Dosage: 0.1 MG, QD
     Route: 065
  3. DEXAMETHASONE. [Interacting]
     Active Substance: DEXAMETHASONE
     Indication: 21-HYDROXYLASE DEFICIENCY
     Dosage: 0.5 MG, QD
     Route: 065
  4. DEXAMETHASONE. [Interacting]
     Active Substance: DEXAMETHASONE
     Indication: HYPERPLASIA ADRENAL

REACTIONS (8)
  - Disturbance in attention [Recovering/Resolving]
  - 17-hydroxyprogesterone increased [Recovering/Resolving]
  - Adrenal insufficiency [Recovering/Resolving]
  - Renin increased [Recovering/Resolving]
  - Fatigue [Recovering/Resolving]
  - Drug interaction [Unknown]
  - Blood corticotrophin increased [Recovering/Resolving]
  - Blood androstenedione increased [Recovering/Resolving]
